FAERS Safety Report 12255255 (Version 1)
Quarter: 2016Q2

REPORT INFORMATION
  Report Type: Spontaneous
  Country: US (occurrence: US)
  Receive Date: 20160412
  Receipt Date: 20160412
  Transmission Date: 20160815
  Serious: No
  Sender: FDA-Public Use
  Company Number: US-ALEMBIC PHARMACUETICALS LIMITED-2014SCAL000049

PATIENT
  Age: 73 Year
  Sex: Female
  Weight: 52.15 kg

DRUGS (1)
  1. ROPINIROLE HYDROCHLORIDE. [Suspect]
     Active Substance: ROPINIROLE HYDROCHLORIDE
     Indication: RESTLESS LEGS SYNDROME
     Dosage: 1/PAY

REACTIONS (2)
  - Muscle twitching [Recovered/Resolved]
  - Chills [Recovered/Resolved]
